FAERS Safety Report 17192040 (Version 1)
Quarter: 2019Q4

REPORT INFORMATION
  Report Type: Report from Study
  Country: PL (occurrence: PL)
  Receive Date: 20191223
  Receipt Date: 20191223
  Transmission Date: 20200122
  Serious: Yes (Death, Hospitalization)
  Sender: FDA-Public Use
  Company Number: PL-BEIGENE AUS PTY LTD-BGN-2019-000795

PATIENT

DRUGS (8)
  1. CONCOR [Concomitant]
     Active Substance: BISOPROLOL FUMARATE
     Indication: CORONARY ARTERY DISEASE
     Dosage: 3.75 MICROGRAM, QD
     Route: 048
     Dates: start: 2013
  2. PROSCAR [Concomitant]
     Active Substance: FINASTERIDE
     Indication: BENIGN PROSTATIC HYPERPLASIA
     Dosage: 5 MICROGRAM, QD
     Route: 048
     Dates: start: 201510
  3. ACENOCUMAROL [Concomitant]
     Active Substance: ACENOCOUMAROL
     Indication: ATRIAL FIBRILLATION
     Dosage: 4 MILLIGRAM
     Route: 065
     Dates: start: 2013, end: 20190317
  4. XARELTO [Concomitant]
     Active Substance: RIVAROXABAN
     Indication: ATRIAL FIBRILLATION
     Dosage: 15 MICROGRAM, QD
     Route: 048
     Dates: start: 20190318
  5. METOPROLOL TARTRATE. [Concomitant]
     Active Substance: METOPROLOL TARTRATE
     Indication: CORONARY ARTERY DISEASE
     Dosage: 50 MICROGRAM, QD
     Route: 048
     Dates: start: 2013
  6. ATORIS [Concomitant]
     Active Substance: ATORVASTATIN CALCIUM
     Indication: HYPERLIPIDAEMIA
     Dosage: 20 MICROGRAM, QD
     Route: 048
     Dates: start: 2013
  7. BGB-3111 [Suspect]
     Active Substance: ZANUBRUTINIB
     Indication: CHRONIC LYMPHOCYTIC LEUKAEMIA
     Dosage: 160 MILLIGRAM, BID
     Route: 048
     Dates: start: 20190401, end: 20190428
  8. OXODIL PPH [Concomitant]
     Indication: ASTHMA
     Dosage: 12 MICROGRAM, PRN
     Dates: start: 1995

REACTIONS (3)
  - Pulmonary embolism [Recovered/Resolved]
  - Endocarditis [Fatal]
  - Cardiac failure [Recovered/Resolved]

NARRATIVE: CASE EVENT DATE: 201904
